FAERS Safety Report 6924154-8 (Version None)
Quarter: 2010Q3

REPORT INFORMATION
  Report Type: 
  Country: None (occurrence: None)
  Receive Date: 20100813
  Receipt Date: 20100806
  Transmission Date: 20110219
  Serious: Yes (Other)
  Sender: FDA-Public Use
  Company Number: BE-AMGEN-QUU423219

PATIENT
  Sex: Male

DRUGS (3)
  1. NPLATE [Suspect]
     Indication: PRODUCT USED FOR UNKNOWN INDICATION
  2. IMMU-G [Concomitant]
     Route: 042
  3. ELTROMBOPAG [Concomitant]
     Dates: start: 20100101

REACTIONS (1)
  - THERAPEUTIC RESPONSE DECREASED [None]
